FAERS Safety Report 24692487 (Version 2)
Quarter: 2025Q1

REPORT INFORMATION
  Report Type: Report from Study
  Country: IN (occurrence: None)
  Receive Date: 20241203
  Receipt Date: 20250319
  Transmission Date: 20250409
  Serious: Yes (Other)
  Sender: INCYTE
  Company Number: IN-002147023-NVSC2024IN228064

PATIENT

DRUGS (3)
  1. RUXOLITINIB [Suspect]
     Active Substance: RUXOLITINIB
     Indication: Primary myelofibrosis
     Dosage: 10 MG, BID
  2. RUXOLITINIB [Suspect]
     Active Substance: RUXOLITINIB
     Dosage: 5 MG, BID
  3. LENALIDOMIDE [Concomitant]
     Active Substance: LENALIDOMIDE
     Indication: Product used for unknown indication
     Route: 065

REACTIONS (11)
  - Cytopenia [Unknown]
  - Rhinitis [Unknown]
  - Pyrexia [Unknown]
  - Haemoglobin decreased [Unknown]
  - Hypertension [Unknown]
  - Hypothyroidism [Unknown]
  - Night sweats [Unknown]
  - Pancytopenia [Unknown]
  - Rash [Unknown]
  - Splenomegaly [Unknown]
  - Weight decreased [Unknown]
